FAERS Safety Report 7063356-X (Version None)
Quarter: 2010Q4

REPORT INFORMATION
  Report Type: 
  Country: None (occurrence: None)
  Receive Date: 20101026
  Receipt Date: 20091106
  Transmission Date: 20110411
  Serious: No
  Sender: FDA-Public Use
  Company Number: US-ABBOTT-09P-163-0607769-00

PATIENT
  Sex: Female
  Weight: 60.836 kg

DRUGS (5)
  1. LUPRON DEPOT [Suspect]
     Indication: ENDOMETRIOSIS
     Dates: start: 20090716, end: 20090901
  2. ZYRTEC [Concomitant]
     Indication: HYPERSENSITIVITY
  3. MULTIPLE VITAMINS [Concomitant]
     Indication: VITAMIN SUPPLEMENTATION
  4. FOLIC ACID [Concomitant]
     Indication: ROUTINE HEALTH MAINTENANCE
  5. FISH OIL [Concomitant]
     Indication: MEDICAL DIET

REACTIONS (3)
  - HEADACHE [None]
  - HYPOAESTHESIA ORAL [None]
  - PHARYNGEAL HYPOAESTHESIA [None]
